FAERS Safety Report 5366191-3 (Version None)
Quarter: 2007Q2

REPORT INFORMATION
  Report Type: 
  Country: None (occurrence: None)
  Receive Date: 20070620
  Receipt Date: 20070605
  Transmission Date: 20071010
  Serious: Yes (Hospitalization, Other)
  Sender: FDA-Public Use
  Company Number: 07-001166

PATIENT
  Age: 49 Year
  Sex: Female
  Weight: 79.4 kg

DRUGS (7)
  1. FEMRING [Suspect]
     Indication: MENOPAUSAL SYMPTOMS
     Dosage: 0.05 MG, QD, VAGINAL
     Route: 067
     Dates: start: 20060101
  2. CYMBALTA [Concomitant]
  3. PREVACID [Concomitant]
  4. PREDNISONE TAB [Concomitant]
  5. ALPRAZOLAM [Concomitant]
  6. HYDROCODONE (HYDROCODONE) [Concomitant]
  7. PERCOCET [Concomitant]

REACTIONS (3)
  - DRUG INEFFECTIVE [None]
  - MENOPAUSAL SYMPTOMS [None]
  - UPPER RESPIRATORY TRACT INFECTION [None]
